FAERS Safety Report 9542023 (Version 1)
Quarter: 2013Q3

REPORT INFORMATION
  Report Type: Report from Study
  Country: FR (occurrence: FR)
  Receive Date: 20130923
  Receipt Date: 20130923
  Transmission Date: 20140515
  Serious: Yes (Hospitalization)
  Sender: FDA-Public Use
  Company Number: PHHO2013FR012245

PATIENT
  Sex: 0

DRUGS (7)
  1. NEORAL [Suspect]
     Indication: RENAL TRANSPLANT
     Dosage: 150 MG, UNK
  2. MYCOPHENOLIC ACID [Suspect]
     Indication: RENAL TRANSPLANT
     Dosage: UNK
  3. CORTANCYL [Suspect]
     Indication: RENAL TRANSPLANT
     Dosage: 7.5 MG, UNK
  4. INEXIUM//ESOMEPRAZOLE SODIUM [Concomitant]
     Indication: REFLUX GASTRITIS
     Dosage: 20 MG, UNK
  5. LEVOTHYROX [Concomitant]
     Indication: HYPOTHYROIDISM
     Dosage: 50 UG, UNK
  6. ALPRAZOLAM [Concomitant]
     Indication: ANXIOLYTIC THERAPY
     Dosage: 0.25 MG, UNK
  7. PRIMPERAN [Concomitant]
     Indication: PROPHYLAXIS OF NAUSEA AND VOMITING
     Dosage: 3 DF, UNK

REACTIONS (2)
  - Lymphopenia [Recovered/Resolved]
  - Hyperthermia [Recovered/Resolved]
